FAERS Safety Report 14111044 (Version 2)
Quarter: 2019Q4

REPORT INFORMATION
  Report Type: Report from Study
  Country: CO (occurrence: CO)
  Receive Date: 20171020
  Receipt Date: 20191216
  Transmission Date: 20200122
  Serious: No
  Sender: FDA-Public Use
  Company Number: CO-REGENERON PHARMACEUTICALS, INC.-2017-24835

PATIENT

DRUGS (12)
  1. EYLEA [Suspect]
     Active Substance: AFLIBERCEPT
     Dosage: 2 MG,OU - FOURTH DOSE
     Route: 031
     Dates: start: 20160819, end: 20160819
  2. EYLEA [Suspect]
     Active Substance: AFLIBERCEPT
     Dosage: 2 MG, OU - SECOND DOSE
     Route: 031
     Dates: start: 20151118, end: 20151118
  3. EYLEA [Suspect]
     Active Substance: AFLIBERCEPT
     Dosage: 2 MG,OU - SIXTH DOSE
     Route: 031
     Dates: start: 20180228, end: 20180228
  4. EYLEA [Suspect]
     Active Substance: AFLIBERCEPT
     Dosage: 2 MG,OU - SEVENTH DOSE
     Route: 031
     Dates: start: 20180404, end: 20180404
  5. EYLEA [Suspect]
     Active Substance: AFLIBERCEPT
     Dosage: 2 MG, OU - THIRD DOSE
     Route: 031
     Dates: start: 20160413, end: 20160413
  6. EYLEA [Suspect]
     Active Substance: AFLIBERCEPT
     Dosage: 2 MG, OU - FIFTH DOSE
     Route: 031
     Dates: start: 20161123, end: 20161123
  7. EYLEA [Suspect]
     Active Substance: AFLIBERCEPT
     Dosage: 2 MG,OU - EIGHTH DOSE
     Route: 031
     Dates: start: 20180509, end: 20180509
  8. EYLEA [Suspect]
     Active Substance: AFLIBERCEPT
     Dosage: 2 MG, OU - NINTH DOSE - LAST INJECTION
     Route: 031
     Dates: start: 20180829, end: 20180829
  9. LOSARTAN. [Concomitant]
     Active Substance: LOSARTAN
     Indication: HYPERTENSION
     Dosage: UNK
  10. METOPROLOL. [Concomitant]
     Active Substance: METOPROLOL
     Indication: HYPERTENSION
     Dosage: UNK
  11. EYLEA [Suspect]
     Active Substance: AFLIBERCEPT
     Indication: DIABETIC RETINAL OEDEMA
     Dosage: 2 MG, OU - FIRST DOSE
     Route: 031
     Dates: start: 20150818, end: 20150818
  12. METFORMIN [Concomitant]
     Active Substance: METFORMIN HYDROCHLORIDE
     Indication: DIABETES MELLITUS
     Dosage: UNK

REACTIONS (1)
  - Inappropriate schedule of product administration [Not Recovered/Not Resolved]
